FAERS Safety Report 9631287 (Version 1)
Quarter: 2013Q4

REPORT INFORMATION
  Report Type: Spontaneous
  Country: ES (occurrence: None)
  Receive Date: 20131011
  Receipt Date: 20131011
  Transmission Date: 20140711
  Serious: Yes (Hospitalization)
  Sender: FDA-Public Use
  Company Number: ES-ZYDUS-002260

PATIENT
  Age: 78 Year
  Sex: Female

DRUGS (2)
  1. CLINDAMYCIN [Suspect]
     Indication: HIP ARTHROPLASTY
  2. LEVOFLOXACIN [Suspect]
     Indication: HIP ARTHROPLASTY

REACTIONS (2)
  - Acute generalised exanthematous pustulosis [None]
  - Drug hypersensitivity [None]
